FAERS Safety Report 5914928-4 (Version None)
Quarter: 2008Q4

REPORT INFORMATION
  Report Type: 
  Country: None (occurrence: None)
  Receive Date: 20081010
  Receipt Date: 20081003
  Transmission Date: 20090506
  Serious: Yes (Hospitalization, Other)
  Sender: FDA-Public Use
  Company Number: US-ELI_LILLY_AND_COMPANY-US200810000359

PATIENT
  Sex: Male

DRUGS (2)
  1. GEMZAR [Suspect]
     Indication: BLADDER CANCER
     Dosage: UNK, OTHER
     Dates: start: 20080721
  2. CARBOPLATIN [Concomitant]
     Indication: BLADDER CANCER
     Dates: start: 20080721

REACTIONS (3)
  - ARTERIOVENOUS FISTULA [None]
  - HYPERAEMIA [None]
  - RECALL PHENOMENON [None]
